FAERS Safety Report 23555976 (Version 2)
Quarter: 2024Q1

REPORT INFORMATION
  Report Type: Report from Study
  Country: CA (occurrence: CA)
  Receive Date: 20240222
  Receipt Date: 20240321
  Transmission Date: 20240409
  Serious: Yes (Other)
  Sender: FDA-Public Use
  Company Number: CA-ABBVIE-5640523

PATIENT
  Age: 59 Year
  Sex: Female

DRUGS (1)
  1. SKYRIZI [Suspect]
     Active Substance: RISANKIZUMAB-RZAA
     Indication: Psoriatic arthropathy
     Route: 058
     Dates: start: 20231214, end: 20240212

REACTIONS (15)
  - Loss of consciousness [Unknown]
  - Fatigue [Unknown]
  - Headache [Unknown]
  - Nausea [Unknown]
  - Dizziness [Unknown]
  - Diarrhoea [Unknown]
  - Myalgia [Unknown]
  - Skin burning sensation [Unknown]
  - Pruritus [Unknown]
  - Throat irritation [Unknown]
  - Skin disorder [Unknown]
  - Oral fungal infection [Unknown]
  - Eye pruritus [Unknown]
  - Ear pruritus [Unknown]
  - Tongue pruritus [Unknown]

NARRATIVE: CASE EVENT DATE: 20240201
